FAERS Safety Report 9290552 (Version 1)
Quarter: 2013Q2

REPORT INFORMATION
  Report Type: Spontaneous
  Country: US (occurrence: US)
  Receive Date: 20130515
  Receipt Date: 20130515
  Transmission Date: 20140414
  Serious: No
  Sender: FDA-Public Use
  Company Number: US-PFIZER INC-2013149605

PATIENT
  Age: 65 Year
  Sex: Male
  Weight: 107 kg

DRUGS (5)
  1. GABAPENTIN [Suspect]
     Indication: DIABETIC NEUROPATHY
     Dosage: 300 MG, 3X/DAY
     Route: 048
     Dates: start: 20130424, end: 2013
  2. GABAPENTIN [Suspect]
     Dosage: 300 MG, 2X/DAY
     Route: 048
     Dates: start: 2013, end: 2013
  3. GABAPENTIN [Suspect]
     Dosage: 300 MG, AS NEEDED
     Route: 048
     Dates: start: 2013, end: 2013
  4. GABAPENTIN [Suspect]
     Dosage: 300 MG, UNK
     Route: 048
     Dates: start: 2013, end: 20130511
  5. AMARYL [Concomitant]
     Indication: DIABETES MELLITUS
     Dosage: 4 MG, 1X/DAY

REACTIONS (2)
  - Off label use [Unknown]
  - Drug ineffective for unapproved indication [Unknown]
